FAERS Safety Report 5322985-1 (Version None)
Quarter: 2007Q2

REPORT INFORMATION
  Report Type: 
  Country: None (occurrence: None)
  Receive Date: 20070202
  Receipt Date: 20061207
  Transmission Date: 20071010
  Serious: No
  Sender: FDA-Public Use
  Company Number: WAES 0701USA00244

PATIENT

DRUGS (1)
  1. JANUVIA [Suspect]
     Dosage: PO
     Route: 048
     Dates: start: 20060101

REACTIONS (2)
  - ANOREXIA [None]
  - DRY SKIN [None]
